FAERS Safety Report 16075338 (Version 2)
Quarter: 2019Q2

REPORT INFORMATION
  Report Type: Report from Study
  Country: None (occurrence: US)
  Receive Date: 20190315
  Receipt Date: 20190429
  Transmission Date: 20190711
  Serious: Yes (Other)
  Sender: FDA-Public Use
  Company Number: US-ABBVIE-19K-163-2702656-00

PATIENT
  Age: 72 Year
  Sex: Female
  Weight: 99.43 kg

DRUGS (2)
  1. HUMIRA [Suspect]
     Active Substance: ADALIMUMAB
     Route: 058
  2. HUMIRA [Suspect]
     Active Substance: ADALIMUMAB
     Indication: RHEUMATOID ARTHRITIS
     Route: 058

REACTIONS (5)
  - Gastrointestinal disorder [Recovered/Resolved]
  - Pain [Unknown]
  - Pain [Recovered/Resolved]
  - Arthralgia [Unknown]
  - Neuralgia [Recovered/Resolved]
